FAERS Safety Report 24864288 (Version 1)
Quarter: 2025Q1

REPORT INFORMATION
  Report Type: Spontaneous
  Country: US (occurrence: None)
  Receive Date: 20250120
  Receipt Date: 20250120
  Transmission Date: 20250408
  Serious: No
  Sender: ALEXION PHARMACEUTICALS
  Company Number: 202501USA014608US

PATIENT

DRUGS (5)
  1. BRILINTA [Suspect]
     Active Substance: TICAGRELOR
  2. CRESTOR [Suspect]
     Active Substance: ROSUVASTATIN CALCIUM
  3. METOPROLOL TARTRATE [Suspect]
     Active Substance: METOPROLOL TARTRATE
  4. PLAVIX [Suspect]
     Active Substance: CLOPIDOGREL BISULFATE
  5. ENTRESTO [Suspect]
     Active Substance: SACUBITRIL\VALSARTAN

REACTIONS (2)
  - Fatigue [Unknown]
  - Dyspnoea [Unknown]
